FAERS Safety Report 10084168 (Version 2)
Quarter: 2014Q2

REPORT INFORMATION
  Report Type: Spontaneous
  Country: JP (occurrence: JP)
  Receive Date: 20140417
  Receipt Date: 20140520
  Transmission Date: 20141212
  Serious: Yes (Other)
  Sender: FDA-Public Use
  Company Number: JP-PFIZER INC-2014107308

PATIENT
  Age: 53 Year
  Sex: Male

DRUGS (1)
  1. AMIODARONE HYDROCHLORIDE [Suspect]
     Indication: VENTRICULAR TACHYCARDIA
     Dosage: 100 MG, UNK
     Route: 048

REACTIONS (3)
  - Thyroiditis [Unknown]
  - Hyperthyroidism [Recovered/Resolved]
  - Diabetes mellitus inadequate control [Unknown]
